FAERS Safety Report 7118787-6 (Version None)
Quarter: 2010Q4

REPORT INFORMATION
  Report Type: 
  Country: None (occurrence: None)
  Receive Date: 20101123
  Receipt Date: 20101112
  Transmission Date: 20110411
  Serious: Yes (Hospitalization, Other)
  Sender: FDA-Public Use
  Company Number: US-ELI_LILLY_AND_COMPANY-US201011005314

PATIENT
  Sex: Female
  Weight: 98.413 kg

DRUGS (13)
  1. PRASUGREL HYDROCHLORIDE [Suspect]
     Indication: ACUTE CORONARY SYNDROME
     Dosage: 10 MG, DAILY (1/D)
     Dates: start: 20100518
  2. ASPIRIN [Concomitant]
     Indication: ANTICOAGULANT THERAPY
     Dosage: 325 MG, DAILY (1/D)
     Dates: start: 20100517
  3. ZOCOR [Concomitant]
     Indication: HYPERCHOLESTEROLAEMIA
     Dosage: 20 MG, DAILY (1/D)
     Route: 048
  4. ZOCOR [Concomitant]
     Dosage: 40 MG, DAILY (1/D)
     Route: 048
  5. ENALAPRIL MALEATE [Concomitant]
     Indication: HYPERTENSION
     Dosage: 5 MG, DAILY (1/D)
     Route: 048
  6. COREG [Concomitant]
     Indication: HYPERTENSION
     Dosage: 6.25 MG, 2/D
     Route: 048
  7. DIGOXIN [Concomitant]
     Indication: ATRIAL FIBRILLATION
     Dosage: 0.13 MG, DAILY (1/D)
     Route: 048
  8. LASIX [Concomitant]
     Indication: HYPERTENSION
     Dosage: 20 MG, DAILY (1/D)
     Route: 048
     Dates: start: 20100527
  9. ALDACTONE [Concomitant]
     Indication: HYPERTENSION
     Dosage: 25 MG, DAILY (1/D)
     Route: 048
  10. ALTACE [Concomitant]
     Indication: HYPERTENSION
     Dosage: 25 MG, DAILY (1/D)
     Route: 048
  11. GLUCOTROL [Concomitant]
     Indication: DIABETES MELLITUS
     Dosage: 5 MG, DAILY (1/D)
     Route: 048
  12. JANUVIA [Concomitant]
     Indication: DIABETES MELLITUS
     Dosage: 50 MG, DAILY (1/D)
     Route: 048
  13. LEVEMIR [Concomitant]
     Indication: HYPERGLYCAEMIA
     Dosage: 25 IU, DAILY (1/D)
     Route: 058

REACTIONS (1)
  - CARDIAC FAILURE CONGESTIVE [None]
